APPROVED DRUG PRODUCT: ESOMEPRAZOLE MAGNESIUM
Active Ingredient: ESOMEPRAZOLE MAGNESIUM
Strength: EQ 20MG BASE
Dosage Form/Route: CAPSULE, DELAYED RELEASE;ORAL
Application: A208939 | Product #001
Applicant: HETERO LABS LTD UNIT III
Approved: May 28, 2020 | RLD: No | RS: No | Type: DISCN